FAERS Safety Report 10866241 (Version 1)
Quarter: 2015Q1

REPORT INFORMATION
  Report Type: Spontaneous
  Country: US (occurrence: None)
  Receive Date: 20150219
  Receipt Date: 20150219
  Transmission Date: 20150721
  Serious: Yes (Life-Threatening, Disabling, Other)
  Sender: FDA-Public Use
  Company Number: None

PATIENT
  Age: 55 Year
  Sex: Female
  Weight: 81.65 kg

DRUGS (1)
  1. HUMIRA [Suspect]
     Active Substance: ADALIMUMAB
     Indication: RHEUMATOID ARTHRITIS
     Dosage: EVERY TWO WEEKS SUBCUTANEOUS
     Dates: start: 20140713, end: 20140810

REACTIONS (10)
  - Fatigue [None]
  - Oedema [None]
  - Limb discomfort [None]
  - Gait disturbance [None]
  - Hypopnoea [None]
  - Cardiac failure [None]
  - Presyncope [None]
  - Chest discomfort [None]
  - Nasopharyngitis [None]
  - Activities of daily living impaired [None]

NARRATIVE: CASE EVENT DATE: 20140729
